FAERS Safety Report 8080342-1 (Version None)
Quarter: 2012Q1

REPORT INFORMATION
  Report Type: 
  Country: None (occurrence: None)
  Receive Date: 20120130
  Receipt Date: 20120119
  Transmission Date: 20120608
  Serious: Yes (Other)
  Sender: FDA-Public Use
  Company Number: BR-PFIZER INC-2011237330

PATIENT
  Age: 40 Year
  Sex: Female
  Weight: 60 kg

DRUGS (4)
  1. VARENICLINE TARTRATE [Suspect]
     Indication: TOBACCO USER
     Dosage: 5 MG, UNK
     Route: 048
     Dates: start: 20110820, end: 20110901
  2. VARENICLINE TARTRATE [Suspect]
     Dosage: 1 MG, 2X/DAY
     Dates: start: 20110901, end: 20111010
  3. VARENICLINE TARTRATE [Suspect]
     Indication: SMOKING CESSATION THERAPY
     Dosage: 1 MG, 2X/DAY (EVERY 12 HOURS)
     Route: 048
     Dates: start: 20110901, end: 20110901
  4. GAMALINE V [Concomitant]
     Indication: PREMENSTRUAL SYNDROME
     Dosage: UNKNOWN DOSE AFTER LUNCH

REACTIONS (7)
  - MAJOR DEPRESSION [None]
  - PAIN [None]
  - SPINAL CORD COMPRESSION [None]
  - APATHY [None]
  - NERVE COMPRESSION [None]
  - SOMNOLENCE [None]
  - TOBACCO USER [None]
